FAERS Safety Report 6602890-0 (Version None)
Quarter: 2010Q1

REPORT INFORMATION
  Report Type: 
  Country: None (occurrence: None)
  Receive Date: 20100226
  Receipt Date: 20100211
  Transmission Date: 20100710
  Serious: Yes (Hospitalization, Other)
  Sender: FDA-Public Use
  Company Number: US-ELI_LILLY_AND_COMPANY-US201002003963

PATIENT
  Sex: Female

DRUGS (6)
  1. FORTEO [Suspect]
     Indication: OSTEOPOROSIS
     Dosage: 20 UG, DAILY (1/D)
     Route: 065
     Dates: start: 20090422, end: 20090801
  2. FORTEO [Suspect]
     Dosage: 20 UG, DAILY (1/D)
     Route: 065
     Dates: start: 20090101
  3. ASPIRIN [Concomitant]
     Dosage: UNK, UNKNOWN
     Route: 065
  4. VITAMINS [Concomitant]
     Dosage: UNK, UNKNOWN
     Route: 065
  5. CALCIUM W/VITAMIN D /00188401/ [Concomitant]
     Dosage: UNK, UNKNOWN
     Route: 065
  6. ANTIHYPERTENSIVES [Concomitant]

REACTIONS (3)
  - ARTHRITIS [None]
  - MEDICATION ERROR [None]
  - SHOULDER OPERATION [None]
